FAERS Safety Report 13505359 (Version 2)
Quarter: 2017Q2

REPORT INFORMATION
  Report Type: Spontaneous
  Country: US (occurrence: US)
  Receive Date: 20170502
  Receipt Date: 20170512
  Transmission Date: 20170830
  Serious: No
  Sender: FDA-Public Use
  Company Number: US-TAIHO ONCOLOGY INC-EU-2017-00691

PATIENT
  Age: 49 Year
  Sex: Female

DRUGS (17)
  1. TESSALON [Concomitant]
     Active Substance: BENZONATATE
     Dosage: NI
  2. LEXAPRO [Concomitant]
     Active Substance: ESCITALOPRAM OXALATE
     Dosage: NI
  3. MYCOSTATIN [Concomitant]
     Active Substance: NYSTATIN
     Dosage: NI
  4. LONSURF [Suspect]
     Active Substance: TIPIRACIL HYDROCHLORIDE\TRIFLURIDINE
     Indication: RECTAL CANCER
     Dosage: CYCLE 1
     Route: 048
     Dates: start: 20170411
  5. ROBITUSSIN (GUAIFENESIN) [Concomitant]
     Active Substance: GUAIFENESIN
     Dosage: NI
  6. ELAVIL [Concomitant]
     Active Substance: AMITRIPTYLINE HYDROCHLORIDE
     Dosage: NI
  7. COMPAZINE [Concomitant]
     Active Substance: PROCHLORPERAZINE MALEATE
     Dosage: NI
  8. NORCO [Concomitant]
     Active Substance: ACETAMINOPHEN\HYDROCODONE BITARTRATE
     Dosage: NI
  9. MUCINEX [Concomitant]
     Active Substance: GUAIFENESIN
     Dosage: NI
  10. DIFLUCAN [Concomitant]
     Active Substance: FLUCONAZOLE
     Dosage: NI
  11. ZESTRIL [Concomitant]
     Active Substance: LISINOPRIL
     Dosage: NI
  12. PRILOSEC [Concomitant]
     Active Substance: OMEPRAZOLE MAGNESIUM
     Dosage: NI
  13. AMBIEN [Concomitant]
     Active Substance: ZOLPIDEM TARTRATE
     Dosage: NI
  14. TYLENOL [Concomitant]
     Active Substance: ACETAMINOPHEN
     Dosage: NI
  15. ADALAT CC [Suspect]
     Active Substance: NIFEDIPINE
     Dosage: NI
  16. SYNTHROID [Concomitant]
     Active Substance: LEVOTHYROXINE SODIUM
     Dosage: NI
  17. PHENERGAN [Concomitant]
     Active Substance: PROMETHAZINE HYDROCHLORIDE
     Dosage: NI

REACTIONS (5)
  - Agitation [Not Recovered/Not Resolved]
  - Oral pain [Unknown]
  - Fatigue [Not Recovered/Not Resolved]
  - Drug dose omission [Unknown]
  - Frustration tolerance decreased [Not Recovered/Not Resolved]

NARRATIVE: CASE EVENT DATE: 201704
